FAERS Safety Report 4737411-0 (Version None)
Quarter: 2005Q3

REPORT INFORMATION
  Report Type: 
  Country: None (occurrence: None)
  Receive Date: 20050802
  Receipt Date: 20050701
  Transmission Date: 20060218
  Serious: Yes (Death, Hospitalization)
  Sender: FDA-Public Use
  Company Number: 213190

PATIENT
  Age: 71 Year
  Sex: Female

DRUGS (8)
  1. MABTHERA (RITUXIMAB) CONC FOR SOLUTION FOR INFUSION [Suspect]
     Indication: NON-HODGKIN'S LYMPHOMA
     Dates: start: 20041122, end: 20050217
  2. CYCLOPHOSPHAMIDE [Suspect]
     Indication: NON-HODGKIN'S LYMPHOMA
     Dates: start: 20041123, end: 20050204
  3. VINCRISTINE [Suspect]
     Indication: NON-HODGKIN'S LYMPHOMA
     Dosage: 2 MG
     Dates: start: 20041123, end: 20050204
  4. DOXORUBICIN HYDROCHLORIDE [Suspect]
     Indication: NON-HODGKIN'S LYMPHOMA
     Dates: start: 20041123, end: 20050204
  5. PREDNISOLONE [Suspect]
     Indication: NON-HODGKIN'S LYMPHOMA
     Dosage: 500 MG
     Dates: start: 20041123, end: 20050204
  6. G-CSF (FILGRASTIM) [Concomitant]
  7. ANTIBIOTIC (ANTIBIOTICS NOS) [Concomitant]
  8. ANTIMYCOTIC NOS (ANTIFUNGAL AGENT NOS) [Concomitant]

REACTIONS (6)
  - BRONCHOPNEUMONIA [None]
  - GENERAL PHYSICAL HEALTH DETERIORATION [None]
  - HYPOTONIA [None]
  - SEPSIS [None]
  - STAPHYLOCOCCAL INFECTION [None]
  - TACHYCARDIA [None]
